FAERS Safety Report 7104955-6 (Version None)
Quarter: 2010Q4

REPORT INFORMATION
  Report Type: 
  Country: None (occurrence: None)
  Receive Date: 20101116
  Receipt Date: 20101103
  Transmission Date: 20110411
  Serious: Yes (Hospitalization)
  Sender: FDA-Public Use
  Company Number: PHHO2005CA12047

PATIENT
  Sex: Female
  Weight: 12 kg

DRUGS (3)
  1. ELIDEL [Suspect]
     Indication: DERMATITIS ATOPIC
     Dosage: APPLIED TWICE DAILY
     Route: 061
     Dates: start: 20040812
  2. DERMATOP [Concomitant]
     Indication: DERMATITIS ATOPIC
  3. CORTATE [Concomitant]
     Indication: DERMATITIS ATOPIC

REACTIONS (3)
  - EAR INFECTION [None]
  - PNEUMONIA PNEUMOCOCCAL [None]
  - PYREXIA [None]
